FAERS Safety Report 5406376-0 (Version None)
Quarter: 2007Q3

REPORT INFORMATION
  Report Type: 
  Country: None (occurrence: None)
  Receive Date: 20070806
  Receipt Date: 20070725
  Transmission Date: 20080115
  Serious: Yes (Hospitalization)
  Sender: FDA-Public Use
  Company Number: MX-GILEAD-2007-0012809

PATIENT
  Sex: Male

DRUGS (4)
  1. EMTRICITABINE [Suspect]
     Indication: HIV INFECTION
     Route: 048
  2. TENOFOVIR DF [Suspect]
     Indication: HIV INFECTION
     Route: 048
  3. SAQUINAVIR [Suspect]
     Indication: HIV INFECTION
     Route: 048
  4. RITONAVIR [Suspect]
     Indication: HIV INFECTION
     Route: 048

REACTIONS (1)
  - BLOOD CREATININE INCREASED [None]
